FAERS Safety Report 8415852-8 (Version None)
Quarter: 2012Q2

REPORT INFORMATION
  Report Type: 
  Country: None (occurrence: None)
  Receive Date: 20120606
  Receipt Date: 20120529
  Transmission Date: 20120825
  Serious: Yes (Other)
  Sender: FDA-Public Use
  Company Number: US-SANOFI-AVENTIS-2012SA038276

PATIENT
  Sex: Male

DRUGS (2)
  1. HUMALOG [Suspect]
     Route: 065
  2. LANTUS [Suspect]
     Route: 058

REACTIONS (1)
  - BLINDNESS [None]
